FAERS Safety Report 7512548-1 (Version None)
Quarter: 2011Q2

REPORT INFORMATION
  Report Type: 
  Country: None (occurrence: None)
  Receive Date: 20110525
  Receipt Date: 20110525
  Transmission Date: 20111010
  Serious: Yes (Other)
  Sender: FDA-Public Use
  Company Number: None

PATIENT
  Age: 55 Year
  Sex: Female
  Weight: 89.8122 kg

DRUGS (1)
  1. RAW THYROID 390 MG NATURAL SOURCES [Suspect]
     Indication: HYPOTHYROIDISM
     Dosage: 390 MG  ONCE DAILY PO
     Route: 048
     Dates: start: 20110223, end: 20110523

REACTIONS (1)
  - MALAISE [None]
